FAERS Safety Report 25601997 (Version 2)
Quarter: 2025Q3

REPORT INFORMATION
  Report Type: Spontaneous
  Country: JP (occurrence: JP)
  Receive Date: 20250724
  Receipt Date: 20250820
  Transmission Date: 20251021
  Serious: Yes (Hospitalization)
  Sender: MERCK SHARP & DOHME LLC
  Company Number: JP-009507513-2310801

PATIENT
  Age: 52 Year
  Sex: Male
  Weight: 52.2 kg

DRUGS (8)
  1. PEMBROLIZUMAB [Suspect]
     Active Substance: PEMBROLIZUMAB
     Indication: Lung adenocarcinoma stage IV
     Dates: start: 20250612
  2. DEXAMETHASONE SODIUM PHOSPHATE [Concomitant]
     Active Substance: DEXAMETHASONE SODIUM PHOSPHATE
  3. PALONOSETRON [Concomitant]
     Active Substance: PALONOSETRON
  4. FOSNETUPITANT CHLORIDE HYDROCHLORIDE [Concomitant]
     Active Substance: FOSNETUPITANT CHLORIDE HYDROCHLORIDE
  5. LEMBOREXANT [Concomitant]
     Active Substance: LEMBOREXANT
  6. VITAMINS [Concomitant]
     Active Substance: VITAMINS
  7. CARBOPLATIN [Concomitant]
     Active Substance: CARBOPLATIN
  8. PEMETREXED [Concomitant]
     Active Substance: PEMETREXED

REACTIONS (2)
  - Immune-mediated adverse reaction [Recovering/Resolving]
  - Pyrexia [Recovered/Resolved]

NARRATIVE: CASE EVENT DATE: 20250621
